FAERS Safety Report 4692645-9 (Version None)
Quarter: 2005Q2

REPORT INFORMATION
  Report Type: 
  Country: None (occurrence: None)
  Receive Date: 20050617
  Receipt Date: 20050302
  Transmission Date: 20051028
  Serious: Yes (Hospitalization)
  Sender: FDA-Public Use
  Company Number: US-MERCK-0503USA00578

PATIENT
  Age: 61 Year
  Sex: Female
  Weight: 88 kg

DRUGS (4)
  1. VIOXX [Suspect]
     Indication: ARTHRITIS
     Route: 048
     Dates: start: 20000808, end: 20011004
  2. MAXZIDE [Concomitant]
     Indication: HYPERTENSION
     Route: 065
     Dates: start: 19950101
  3. COUMADIN [Concomitant]
     Indication: DEEP VEIN THROMBOSIS
     Route: 065
     Dates: start: 20000501
  4. SYNTHROID [Concomitant]
     Indication: HYPOTHYROIDISM
     Route: 065
     Dates: start: 19950101

REACTIONS (4)
  - BLOOD TRIGLYCERIDES INCREASED [None]
  - DEEP VEIN THROMBOSIS [None]
  - GASTROOESOPHAGEAL REFLUX DISEASE [None]
  - SHOULDER PAIN [None]
